FAERS Safety Report 5296876-9 (Version None)
Quarter: 2007Q2

REPORT INFORMATION
  Report Type: 
  Country: None (occurrence: None)
  Receive Date: 20070413
  Receipt Date: 20070403
  Transmission Date: 20071010
  Serious: Yes (Life-Threatening)
  Sender: FDA-Public Use
  Company Number: FR-PFIZER INC-2007027896

PATIENT
  Age: 54 Year
  Sex: Male

DRUGS (7)
  1. SUTENT [Suspect]
     Route: 048
     Dates: start: 20070213, end: 20070309
  2. METHYLPREDNISOLONE 16MG TAB [Suspect]
     Dosage: TEXT:20MG/2ML
     Route: 042
     Dates: start: 20070215, end: 20070220
  3. PREDNISOLONE [Suspect]
     Route: 048
     Dates: start: 20070217, end: 20070221
  4. LOXEN [Concomitant]
     Dosage: DAILY DOSE:20MG
     Route: 048
     Dates: start: 20070212, end: 20070226
  5. DURAGESIC-100 [Concomitant]
     Dates: start: 20070215, end: 20070309
  6. ACTISKENAN [Concomitant]
     Dates: start: 20070215, end: 20070309
  7. FORLAX [Concomitant]
     Dates: start: 20070217, end: 20070303

REACTIONS (1)
  - HYPERTENSION [None]
